FAERS Safety Report 24924454 (Version 1)
Quarter: 2025Q1

REPORT INFORMATION
  Report Type: Spontaneous
  Country: US (occurrence: US)
  Receive Date: 20250204
  Receipt Date: 20250204
  Transmission Date: 20250408
  Serious: Yes (Hospitalization, Other)
  Sender: AMGEN
  Company Number: US-AMGEN-USASP2025019230

PATIENT

DRUGS (1)
  1. BEVACIZUMAB [Suspect]
     Active Substance: BEVACIZUMAB
     Indication: Dry age-related macular degeneration
     Route: 065

REACTIONS (9)
  - Blindness [Unknown]
  - Fall [Unknown]
  - Fracture [Unknown]
  - Joint dislocation [Unknown]
  - Unevaluable event [Unknown]
  - Head injury [Unknown]
  - Depression [Unknown]
  - Off label use [Unknown]
  - Anxiety [Unknown]
